FAERS Safety Report 7893349-1 (Version None)
Quarter: 2011Q4

REPORT INFORMATION
  Report Type: 
  Country: None (occurrence: None)
  Receive Date: 20111104
  Receipt Date: 20111028
  Transmission Date: 20120403
  Serious: Yes (Other)
  Sender: FDA-Public Use
  Company Number: US-PFIZER INC-2011265359

PATIENT
  Age: 51 Year
  Sex: Male
  Weight: 81.633 kg

DRUGS (2)
  1. REVATIO [Suspect]
     Dosage: UNK
  2. REMODULIN [Suspect]
     Indication: PULMONARY ARTERIAL HYPERTENSION
     Dosage: 151.2 UG/KG, UNK
     Route: 042
     Dates: start: 20100217

REACTIONS (4)
  - INJECTION SITE INFECTION [None]
  - NAUSEA [None]
  - VOMITING [None]
  - PAIN IN EXTREMITY [None]
